FAERS Safety Report 6727830-5 (Version None)
Quarter: 2010Q2

REPORT INFORMATION
  Report Type: 
  Country: None (occurrence: None)
  Receive Date: 20100517
  Receipt Date: 20100506
  Transmission Date: 20101027
  Serious: Yes (Other)
  Sender: FDA-Public Use
  Company Number: CO-JNJFOC-20100505442

PATIENT
  Age: 37 Year
  Sex: Female

DRUGS (4)
  1. REMICADE [Suspect]
     Indication: SPONDYLITIS
     Dosage: 6 INFUSIONS TOTAL
     Route: 042
     Dates: start: 20090401, end: 20100301
  2. METHOTREXATE [Concomitant]
  3. TRAMAL [Concomitant]
  4. IBUPROFEN [Concomitant]

REACTIONS (2)
  - HAEMOPTYSIS [None]
  - HYPERSENSITIVITY [None]
